FAERS Safety Report 18941334 (Version 2)
Quarter: 2021Q1

REPORT INFORMATION
  Report Type: Spontaneous
  Country: CN (occurrence: CN)
  Receive Date: 20210225
  Receipt Date: 20210226
  Transmission Date: 20210420
  Serious: Yes (Death)
  Sender: FDA-Public Use
  Company Number: CN-ASTRAZENECA-2021A084331

PATIENT
  Age: 55 Year
  Sex: Male
  Weight: 55 kg

DRUGS (1)
  1. IMFINZI [Suspect]
     Active Substance: DURVALUMAB
     Indication: NON-SMALL CELL LUNG CANCER STAGE III
     Dosage: DOSE: 620MG
     Route: 042
     Dates: start: 20201125, end: 20201125

REACTIONS (1)
  - Malignant neoplasm progression [Fatal]
